FAERS Safety Report 21087732 (Version 1)
Quarter: 2022Q3

REPORT INFORMATION
  Report Type: Spontaneous
  Country: US (occurrence: US)
  Receive Date: 20220715
  Receipt Date: 20220715
  Transmission Date: 20221026
  Serious: No
  Sender: FDA-Public Use
  Company Number: US-LUNDBECK-DKLU3049875

PATIENT
  Age: 79 Year
  Sex: Male

DRUGS (1)
  1. NORTHERA [Suspect]
     Active Substance: DROXIDOPA
     Indication: Orthostatic hypotension
     Dosage: TAKE 2 CAPSULES BY MOUTH THREE TIMES DAILY AT 9 AM, 1 PM, AND 5 PM
     Route: 048
     Dates: start: 20200623

REACTIONS (2)
  - Fatigue [Unknown]
  - Product dose omission issue [Unknown]
